FAERS Safety Report 10017433 (Version 2)
Quarter: 2014Q2

REPORT INFORMATION
  Report Type: Spontaneous
  Country: US (occurrence: US)
  Receive Date: 20140318
  Receipt Date: 20140415
  Transmission Date: 20141212
  Serious: No
  Sender: FDA-Public Use
  Company Number: US-PFIZER INC-2014075650

PATIENT
  Age: 33 Year
  Sex: Female
  Weight: 108 kg

DRUGS (3)
  1. LYRICA [Suspect]
     Indication: FIBROMYALGIA
     Dosage: 200 MG, 2X/DAY
  2. LOVENOX [Concomitant]
     Indication: THROMBOSIS
     Dosage: 150 MG, 2X/DAY
  3. LOVENOX [Concomitant]
     Indication: THROMBOSIS

REACTIONS (2)
  - Therapeutic response changed [Unknown]
  - Pre-existing condition improved [Unknown]
